FAERS Safety Report 16514084 (Version 2)
Quarter: 2020Q1

REPORT INFORMATION
  Report Type: Spontaneous
  Country: IT (occurrence: IT)
  Receive Date: 20190701
  Receipt Date: 20200130
  Transmission Date: 20200409
  Serious: Yes (Hospitalization, Other)
  Sender: FDA-Public Use
  Company Number: IT-CELLTRION INC.-2019IT022204

PATIENT

DRUGS (4)
  1. CORTICOSTEROID NOS [Suspect]
     Active Substance: CORTICOSTEROID NOS
     Indication: CROHN^S DISEASE
     Dosage: 1 MG/KG FOR 12 WEEKS
  2. INFLIXIMAB (UNKNOWN) [Suspect]
     Active Substance: INFLIXIMAB
     Indication: CROHN^S DISEASE
     Dosage: 5MG, CYCLIC (AT WEEKS 0, 2 AND 6)
     Route: 065
  3. CORTICOSTEROID NOS [Suspect]
     Active Substance: CORTICOSTEROID NOS
     Indication: ENDOMETRIOSIS
  4. INFLIXIMAB (UNKNOWN) [Suspect]
     Active Substance: INFLIXIMAB
     Indication: ENDOMETRIOSIS
     Dosage: 5MG/KG, CYCLIC (EVERY 8 WEEKS AS MAINTENANCE MONOTHERAPY)
     Route: 065

REACTIONS (3)
  - Off label use [Unknown]
  - Kaposi^s sarcoma [Recovered/Resolved]
  - Product use in unapproved indication [Unknown]
